FAERS Safety Report 17664142 (Version 1)
Quarter: 2020Q2

REPORT INFORMATION
  Report Type: Spontaneous
  Country: FI (occurrence: FI)
  Receive Date: 20200414
  Receipt Date: 20200414
  Transmission Date: 20200713
  Serious: Yes (Other)
  Sender: FDA-Public Use
  Company Number: FI-ROCHE-2579342

PATIENT
  Sex: Male

DRUGS (3)
  1. ROACTEMRA [Suspect]
     Active Substance: TOCILIZUMAB
     Indication: AORTITIS
  2. CORTISONE [Concomitant]
     Active Substance: CORTISONE
  3. ROACTEMRA [Suspect]
     Active Substance: TOCILIZUMAB
     Indication: TEMPORAL ARTERITIS
     Route: 042

REACTIONS (5)
  - Fluid retention [Unknown]
  - Splenic abscess [Unknown]
  - Intentional product use issue [Unknown]
  - Off label use [Unknown]
  - Liver abscess [Unknown]
